FAERS Safety Report 9322703 (Version 7)
Quarter: 2014Q2

REPORT INFORMATION
  Report Type: Spontaneous
  Country: US (occurrence: US)
  Receive Date: 20130601
  Receipt Date: 20140527
  Transmission Date: 20141212
  Serious: Yes (Hospitalization, Disabling, Other)
  Sender: FDA-Public Use
  Company Number: US-ASTRAZENECA-2013SE38536

PATIENT
  Age: 48 Year
  Sex: Male

DRUGS (15)
  1. NEXIUM [Suspect]
     Indication: GASTROOESOPHAGEAL REFLUX DISEASE
     Route: 048
     Dates: start: 2005, end: 201008
  2. NEXIUM [Suspect]
     Indication: GASTROOESOPHAGEAL REFLUX DISEASE
     Route: 048
     Dates: start: 20060530
  3. NEXIUM [Suspect]
     Indication: GASTROOESOPHAGEAL REFLUX DISEASE
     Route: 048
     Dates: start: 20090610
  4. NEXIUM [Suspect]
     Indication: GASTROOESOPHAGEAL REFLUX DISEASE
     Route: 048
     Dates: start: 20060403
  5. PEPCID [Concomitant]
  6. ALKA SELTZER [Concomitant]
  7. TUMS [Concomitant]
  8. ROLAIDS [Concomitant]
  9. FLEXERIL [Concomitant]
  10. IBUPROFEN [Concomitant]
     Dates: start: 20060530
  11. LEXAPRO [Concomitant]
  12. OMEPRAZOLE [Concomitant]
  13. HYDROCODONE [Concomitant]
     Route: 048
  14. PANTOPRAZOLE/ PROTONIX [Concomitant]
     Route: 048
  15. BISACODYL [Concomitant]
     Route: 048

REACTIONS (14)
  - Spinal compression fracture [Unknown]
  - Pancreatitis acute [Unknown]
  - Lumbar vertebral fracture [Unknown]
  - Metabolic acidosis [Unknown]
  - Hypokalaemia [Unknown]
  - Osteoporosis [Unknown]
  - Bone disorder [Unknown]
  - Multiple fractures [Unknown]
  - Scoliosis [Unknown]
  - Osteoarthritis [Unknown]
  - Intervertebral disc protrusion [Unknown]
  - Lumbar spinal stenosis [Unknown]
  - Vertebral wedging [Unknown]
  - Depression [Unknown]
